FAERS Safety Report 7249240-7 (Version None)
Quarter: 2011Q1

REPORT INFORMATION
  Report Type: 
  Country: None (occurrence: None)
  Receive Date: 20110128
  Receipt Date: 20101116
  Transmission Date: 20110831
  Serious: Yes (Hospitalization, Other)
  Sender: FDA-Public Use
  Company Number: US-BAYER-201023028NA

PATIENT
  Sex: Female
  Weight: 117.91 kg

DRUGS (1)
  1. YAZ [Suspect]
     Indication: CONTRACEPTION
     Dosage: UNK UNK, QD
     Route: 048
     Dates: start: 20080101, end: 20080701

REACTIONS (6)
  - OEDEMA PERIPHERAL [None]
  - PAINFUL RESPIRATION [None]
  - RALES [None]
  - ASPHYXIA [None]
  - PULMONARY EMBOLISM [None]
  - CHEST PAIN [None]
